FAERS Safety Report 7944099-4 (Version None)
Quarter: 2011Q4

REPORT INFORMATION
  Report Type: 
  Country: None (occurrence: None)
  Receive Date: 20111128
  Receipt Date: 20111117
  Transmission Date: 20120403
  Serious: Yes (Hospitalization, Other)
  Sender: FDA-Public Use
  Company Number: US-ASTRAZENECA-2011SE49541

PATIENT
  Age: 69 Year
  Sex: Female
  Weight: 59.9 kg

DRUGS (29)
  1. CITALOPRAM HYDROBROMIDE [Concomitant]
     Indication: DEPRESSION
     Route: 048
     Dates: start: 20110501
  2. SEROQUEL [Suspect]
     Route: 048
  3. SEROQUEL [Suspect]
     Route: 048
  4. METOPROLOL TARTRATE [Concomitant]
     Indication: HYPERTENSION
     Route: 048
  5. SEROQUEL [Suspect]
     Route: 048
     Dates: start: 20100201
  6. SEROQUEL [Suspect]
     Route: 048
     Dates: start: 20100201
  7. ARICEPT [Concomitant]
  8. SEROQUEL [Suspect]
     Route: 048
     Dates: start: 20100101
  9. SEROQUEL [Suspect]
     Route: 048
  10. SEROQUEL [Suspect]
     Route: 048
  11. HYDROCHLOROTHIAZIDE [Concomitant]
     Indication: HYPERTENSION
     Route: 048
     Dates: start: 20110301
  12. ALPRAZOLAM [Concomitant]
     Route: 048
     Dates: start: 20090101
  13. SEROQUEL [Suspect]
     Indication: DEMENTIA ALZHEIMER'S TYPE
     Route: 048
     Dates: start: 20091001
  14. SEROQUEL [Suspect]
     Route: 048
     Dates: start: 20100101
  15. NAMENDA [Concomitant]
  16. SEROQUEL [Suspect]
     Indication: DEPRESSION
     Route: 048
     Dates: start: 20091001
  17. SEROQUEL [Suspect]
     Route: 048
     Dates: start: 20110301
  18. SEROQUEL [Suspect]
     Route: 048
  19. SEROQUEL [Suspect]
     Route: 048
     Dates: end: 20110901
  20. SEROQUEL [Suspect]
     Indication: DEMENTIA
     Route: 048
     Dates: start: 20091001
  21. SEROQUEL [Suspect]
     Route: 048
     Dates: start: 20100101
  22. SEROQUEL [Suspect]
     Route: 048
     Dates: start: 20110301
  23. SEROQUEL [Suspect]
     Route: 048
     Dates: start: 20110301
  24. ALPRAZOLAM [Concomitant]
     Indication: DEPRESSION
     Route: 048
     Dates: start: 20050101, end: 20090101
  25. SEROQUEL [Suspect]
     Route: 048
     Dates: start: 20100201
  26. SEROQUEL [Suspect]
     Route: 048
     Dates: end: 20110901
  27. SEROQUEL [Suspect]
     Route: 048
     Dates: end: 20110901
  28. SEROQUEL [Suspect]
     Route: 048
  29. LEXAPRO [Concomitant]
     Indication: DEPRESSION
     Route: 048
     Dates: start: 20070101, end: 20110501

REACTIONS (15)
  - TRANSIENT ISCHAEMIC ATTACK [None]
  - SPEECH DISORDER [None]
  - ANXIETY [None]
  - APHASIA [None]
  - FALL [None]
  - DEPRESSION [None]
  - PSYCHOTIC DISORDER [None]
  - DYSPHAGIA [None]
  - OFF LABEL USE [None]
  - CONFUSIONAL STATE [None]
  - MOTOR DYSFUNCTION [None]
  - CRYING [None]
  - THERAPEUTIC RESPONSE UNEXPECTED [None]
  - OVERDOSE [None]
  - AGITATION [None]
